FAERS Safety Report 6393893 (Version 14)
Quarter: 2012Q4

REPORT INFORMATION
  Report Type: 
  Country: GB (occurrence: GB)
  Receive Date: 20070829
  Receipt Date: 20121220
  Transmission Date: 20130627
  Serious: Yes (Death, Other)
  Sender: FDA-Public Use
  Company Number: GB-ROCHE-GNE225181

PATIENT
  Age: 45 None
  Sex: Female

DRUGS (14)
  1. MABTHERA [Suspect]
     Indication: SYSTEMIC LUPUS ERYTHEMATOSUS
     Dosage: 375 mg/m2, 1/Week
     Route: 042
     Dates: start: 20020801, end: 20050901
  2. MABTHERA [Suspect]
     Dosage: 375 mg/m2, 1/Week
     Route: 042
     Dates: start: 200504, end: 200505
  3. MABTHERA [Suspect]
     Dosage: 375 mg/m2, single
     Route: 042
     Dates: start: 200511
  4. AMLODIPINE [Concomitant]
     Indication: RAYNAUD^S PHENOMENON
     Dosage: 5 mg, qod
     Route: 048
     Dates: start: 200206
  5. CALCICHEW D3 [Concomitant]
     Indication: OSTEOPOROSIS
     Dosage: 1 UNK, bid
     Route: 048
     Dates: start: 200306
  6. HYDROXYCHLOROQUINE [Concomitant]
     Indication: SYSTEMIC LUPUS ERYTHEMATOSUS
     Dosage: 300 mg, UNK
     Route: 048
     Dates: start: 200206
  7. THYROXINE [Concomitant]
     Indication: HYPOTHYROIDISM
     Dosage: 75 ?g, UNK
     Route: 065
     Dates: start: 199006
  8. CLARITIN [Concomitant]
     Indication: HYPERSENSITIVITY
     Dosage: 1 UNK, qod
     Route: 048
     Dates: start: 20040615
  9. NUVELLE [Concomitant]
     Indication: PREMATURE MENOPAUSE
     Dosage: 1 UNK, qod
     Route: 065
     Dates: start: 199306
  10. FOLIC ACID [Concomitant]
     Indication: PRODUCT USED FOR UNKNOWN INDICATION
     Route: 048
  11. IMMUNOGLOBULIN [Concomitant]
     Indication: PRODUCT USED FOR UNKNOWN INDICATION
  12. LEVOMEPROMAZINE [Concomitant]
     Indication: PRODUCT USED FOR UNKNOWN INDICATION
     Route: 048
  13. PROBENECID [Concomitant]
     Indication: PRODUCT USED FOR UNKNOWN INDICATION
  14. PREDNISOLONE [Concomitant]
     Indication: SYSTEMIC LUPUS ERYTHEMATOSUS
     Route: 065
     Dates: start: 2002, end: 2003

REACTIONS (12)
  - Progressive multifocal leukoencephalopathy [Fatal]
  - Pneumonia aspiration [Fatal]
  - Respiratory failure [Fatal]
  - B-lymphocyte count decreased [Recovered/Resolved]
  - JC virus infection [Not Recovered/Not Resolved]
  - Ataxia [Not Recovered/Not Resolved]
  - Balance disorder [Not Recovered/Not Resolved]
  - Dysarthria [Not Recovered/Not Resolved]
  - Dysphagia [Not Recovered/Not Resolved]
  - Aphasia [Not Recovered/Not Resolved]
  - Nystagmus [Not Recovered/Not Resolved]
  - Past-pointing [Not Recovered/Not Resolved]
